FAERS Safety Report 9086138 (Version 1)
Quarter: 2013Q1

REPORT INFORMATION
  Report Type: Spontaneous
  Country: CA (occurrence: US)
  Receive Date: 20130131
  Receipt Date: 20130131
  Transmission Date: 20140127
  Serious: Yes (Other)
  Sender: FDA-Public Use
  Company Number: CA-SANOFI-AVENTIS-2013SA006771

PATIENT
  Age: 56 Year
  Sex: Female

DRUGS (1)
  1. PLAVIX [Suspect]
     Indication: PROPHYLAXIS

REACTIONS (3)
  - Atrial fibrillation [Unknown]
  - Nausea [Unknown]
  - Contusion [Unknown]
